FAERS Safety Report 23038380 (Version 1)
Quarter: 2023Q4

REPORT INFORMATION
  Report Type: Spontaneous
  Country: US (occurrence: US)
  Receive Date: 20231006
  Receipt Date: 20231006
  Transmission Date: 20240109
  Serious: No
  Sender: FDA-Public Use
  Company Number: US-ELI_LILLY_AND_COMPANY-US202310003323

PATIENT
  Sex: Female

DRUGS (1)
  1. TALTZ [Suspect]
     Active Substance: IXEKIZUMAB
     Indication: Psoriasis
     Dosage: 80 MG, UNKNOWN
     Route: 065

REACTIONS (5)
  - Injection site erythema [Unknown]
  - Injection site swelling [Recovering/Resolving]
  - Injection site pruritus [Unknown]
  - Injection site rash [Unknown]
  - Injection site mass [Unknown]
